FAERS Safety Report 8399534-7 (Version None)
Quarter: 2012Q2

REPORT INFORMATION
  Report Type: 
  Country: None (occurrence: None)
  Receive Date: 20120531
  Receipt Date: 20120521
  Transmission Date: 20120825
  Serious: Yes (Hospitalization, Disabling, Other)
  Sender: FDA-Public Use
  Company Number: US-MERCK-1203USA03322

PATIENT
  Age: 83 Year
  Sex: Female
  Weight: 63 kg

DRUGS (3)
  1. FOSAMAX [Suspect]
     Route: 048
     Dates: start: 20081028, end: 20110823
  2. FOSAMAX [Suspect]
     Indication: OSTEOPENIA
     Route: 048
     Dates: start: 20040430, end: 20110101
  3. FOSAMAX [Suspect]
     Indication: OSTEOPOROSIS
     Route: 048
     Dates: start: 20040430, end: 20110101

REACTIONS (52)
  - OSTEOMYELITIS BACTERIAL [None]
  - URINARY TRACT INFECTION [None]
  - STRESS FRACTURE [None]
  - INTERVERTEBRAL DISC DEGENERATION [None]
  - SPONDYLOARTHROPATHY [None]
  - POLYMYALGIA RHEUMATICA [None]
  - RENAL FAILURE CHRONIC [None]
  - LOW TURNOVER OSTEOPATHY [None]
  - COMPRESSION FRACTURE [None]
  - METABOLIC ACIDOSIS [None]
  - TUBULOINTERSTITIAL NEPHRITIS [None]
  - VITAMIN D DEFICIENCY [None]
  - PERIODONTAL DISEASE [None]
  - MULTIPLE ALLERGIES [None]
  - CARTILAGE INJURY [None]
  - SEPSIS [None]
  - OSTEOPOROSIS [None]
  - ANAEMIA [None]
  - TEMPORAL ARTERITIS [None]
  - PAIN [None]
  - OSTEOARTHRITIS [None]
  - MUSCLE SPASMS [None]
  - FEMUR FRACTURE [None]
  - LUMBAR RADICULOPATHY [None]
  - HYPERKALAEMIA [None]
  - RASH [None]
  - ASTHMA [None]
  - BLOOD UREA INCREASED [None]
  - GALLBLADDER DISORDER [None]
  - INFECTION [None]
  - ABSCESS [None]
  - HYPOVOLAEMIA [None]
  - HYPERLIPIDAEMIA [None]
  - TOOTH DISORDER [None]
  - TENDONITIS [None]
  - SPONDYLOLISTHESIS [None]
  - ROTATOR CUFF SYNDROME [None]
  - RENAL FAILURE [None]
  - GASTROOESOPHAGEAL REFLUX DISEASE [None]
  - HAEMATURIA [None]
  - ARTHROPATHY [None]
  - GOUT [None]
  - SCOLIOSIS [None]
  - SPINAL DISORDER [None]
  - TEMPOROMANDIBULAR JOINT SYNDROME [None]
  - ATROPHIC VULVOVAGINITIS [None]
  - FIBROCYSTIC BREAST DISEASE [None]
  - OSTEOMYELITIS [None]
  - ADRENAL ADENOMA [None]
  - INTESTINAL POLYP [None]
  - PRURITUS [None]
  - METABOLIC SYNDROME [None]
